FAERS Safety Report 7225806-5 (Version None)
Quarter: 2011Q1

REPORT INFORMATION
  Report Type: 
  Country: None (occurrence: None)
  Receive Date: 20110113
  Receipt Date: 20110111
  Transmission Date: 20110831
  Serious: Yes (Hospitalization)
  Sender: FDA-Public Use
  Company Number: SE-PFIZER INC-2007032608

PATIENT
  Age: 59 Year
  Sex: Female
  Weight: 63 kg

DRUGS (18)
  1. LEVOTHYROXINE SODIUM [Concomitant]
     Route: 048
     Dates: start: 19800317
  2. LACTULOSE [Concomitant]
  3. PANTOPRAZOLE SODIUM [Concomitant]
  4. TAVEGYL [Concomitant]
     Route: 048
     Dates: start: 20050204
  5. BETOLVEX [Concomitant]
     Route: 048
     Dates: start: 19730116
  6. LERGIGAN [Concomitant]
  7. ZOLPIDEM TARTRATE [Concomitant]
  8. SUNITINIB MALATE [Suspect]
     Indication: GASTROINTESTINAL STROMAL TUMOUR
     Dosage: 25 MG, 1X/DAY
     Route: 048
     Dates: start: 20060216, end: 20070421
  9. XYLOCAINE [Concomitant]
     Route: 048
     Dates: start: 20060315
  10. ZINCFRIN [Concomitant]
     Route: 048
     Dates: start: 20070130
  11. TIPAROL [Concomitant]
     Route: 048
     Dates: start: 20070327, end: 20070421
  12. INDERAL [Concomitant]
     Route: 048
     Dates: start: 20060803
  13. POTASSIUM CHLORIDE [Concomitant]
     Route: 048
     Dates: start: 20041227
  14. FUROSEMIDE [Concomitant]
     Route: 048
     Dates: start: 20041227
  15. ZYPREXA [Concomitant]
  16. DIMETICONE [Concomitant]
     Route: 048
     Dates: start: 19780321
  17. PROPAVAN [Concomitant]
     Route: 048
     Dates: start: 19830101
  18. FOLACIN [Concomitant]
     Route: 048
     Dates: start: 19730116

REACTIONS (1)
  - PNEUMONIA [None]
